FAERS Safety Report 16199738 (Version 1)
Quarter: 2019Q2

REPORT INFORMATION
  Report Type: Spontaneous
  Country: PL (occurrence: PL)
  Receive Date: 20190415
  Receipt Date: 20190415
  Transmission Date: 20190711
  Serious: Yes (Other)
  Sender: FDA-Public Use
  Company Number: PL-PFIZER INC-2018232186

PATIENT
  Age: 36 Year
  Sex: Female

DRUGS (5)
  1. HERCEPTIN [Suspect]
     Active Substance: TRASTUZUMAB
     Dosage: 6 MG/KG, UNK (NEXT DOSES)
     Route: 042
  2. PERJETA [Suspect]
     Active Substance: PERTUZUMAB
     Indication: BREAST CANCER METASTATIC
     Dosage: 840 MG, UNK (FIRST DOSE)
     Route: 042
     Dates: start: 201608
  3. HERCEPTIN [Suspect]
     Active Substance: TRASTUZUMAB
     Indication: BREAST CANCER METASTATIC
     Dosage: 8 MG/KG, UNK (FIRST DOSE)
     Route: 042
     Dates: start: 201608
  4. PERJETA [Suspect]
     Active Substance: PERTUZUMAB
     Dosage: 420 MG, UNK (NEXT DOSES)
     Route: 042
  5. DOCETAXEL. [Suspect]
     Active Substance: DOCETAXEL
     Indication: BREAST CANCER METASTATIC
     Dosage: 75 MG/M2, UNK
     Dates: start: 201608

REACTIONS (9)
  - Ejection fraction decreased [Unknown]
  - Peripheral swelling [Unknown]
  - Neoplasm progression [Unknown]
  - Pruritus [Recovered/Resolved]
  - Hypoaesthesia [Unknown]
  - Oedema peripheral [Unknown]
  - Hepatomegaly [Unknown]
  - Erythema [Unknown]
  - Polyneuropathy [Unknown]

NARRATIVE: CASE EVENT DATE: 201611
